FAERS Safety Report 12205548 (Version 5)
Quarter: 2016Q4

REPORT INFORMATION
  Report Type: Report from Study
  Country: CO (occurrence: CO)
  Receive Date: 20160323
  Receipt Date: 20161116
  Transmission Date: 20170207
  Serious: Yes (Hospitalization, Other)
  Sender: FDA-Public Use
  Company Number: PHHY2015CO044004

PATIENT
  Age: 34 Year
  Sex: Female
  Weight: 48 kg

DRUGS (11)
  1. SOLIRIS [Concomitant]
     Active Substance: ECULIZUMAB
     Dosage: 900 MG, QW2 (EVERY 14 DAYS)
     Route: 042
  2. AMITRIPTYLLINE [Concomitant]
     Active Substance: AMITRIPTYLINE
     Indication: PRODUCT USED FOR UNKNOWN INDICATION
     Route: 065
  3. PREGABALIN. [Concomitant]
     Active Substance: PREGABALIN
     Indication: PRODUCT USED FOR UNKNOWN INDICATION
     Route: 065
  4. ACETAMINOPHEN. [Concomitant]
     Active Substance: ACETAMINOPHEN
     Indication: PRODUCT USED FOR UNKNOWN INDICATION
     Route: 065
  5. SOLIRIS [Concomitant]
     Active Substance: ECULIZUMAB
     Indication: CHEMOTHERAPY
     Dosage: 300 MG, QW2
     Route: 065
  6. EXJADE [Suspect]
     Active Substance: DEFERASIROX
     Indication: APLASTIC ANAEMIA
     Dosage: 10 MG/KG, QD (250 MG BID)
     Route: 048
     Dates: start: 20080105
  7. EXJADE [Suspect]
     Active Substance: DEFERASIROX
     Dosage: 500 MG, BID
     Route: 048
     Dates: end: 201512
  8. TRAMADOL. [Concomitant]
     Active Substance: TRAMADOL
     Indication: PRODUCT USED FOR UNKNOWN INDICATION
     Route: 065
  9. OMEPRAZOLE. [Concomitant]
     Active Substance: OMEPRAZOLE
     Indication: PRODUCT USED FOR UNKNOWN INDICATION
     Route: 065
  10. COMPLEX B [Concomitant]
     Active Substance: CALCIUM PANTOTHENATE\CYANOCOBALAMIN\NIACINAMIDE\PYRIDOXINE HYDROCHLORIDE\RIBOFLAVIN\THIAMINE MONONITRATE
     Indication: PRODUCT USED FOR UNKNOWN INDICATION
     Route: 065
  11. PEGFILGRASTIM [Concomitant]
     Active Substance: PEGFILGRASTIM
     Indication: PRODUCT USED FOR UNKNOWN INDICATION
     Route: 065

REACTIONS (15)
  - General physical health deterioration [Unknown]
  - Blood test abnormal [Unknown]
  - Urinary tract infection [Unknown]
  - Infection [Unknown]
  - Pain [Unknown]
  - Myalgia [Unknown]
  - Cholelithiasis [Unknown]
  - Aplastic anaemia [Unknown]
  - Muscle spasms [Unknown]
  - Serum ferritin increased [Unknown]
  - Alopecia [Unknown]
  - Laboratory test abnormal [Unknown]
  - Haemoglobin decreased [Unknown]
  - Platelet count abnormal [Unknown]
  - Insomnia [Unknown]

NARRATIVE: CASE EVENT DATE: 201601
